FAERS Safety Report 9060089 (Version 1)
Quarter: 2013Q1

REPORT INFORMATION
  Report Type: Spontaneous
  Country: US (occurrence: None)
  Receive Date: 20130207
  Receipt Date: 20130207
  Transmission Date: 20140127
  Serious: Yes (Other)
  Sender: FDA-Public Use
  Company Number: None

PATIENT
  Age: 47 Year
  Sex: Female
  Weight: 113.4 kg

DRUGS (1)
  1. LEVOFLOXACIN [Suspect]
     Indication: BACTERIAL INFECTION
     Dates: start: 20121227

REACTIONS (3)
  - Pain in jaw [None]
  - Neck pain [None]
  - Drug hypersensitivity [None]
